FAERS Safety Report 25946397 (Version 1)
Quarter: 2025Q4

REPORT INFORMATION
  Report Type: Other
  Country: US (occurrence: US)
  Receive Date: 20251022
  Receipt Date: 20251022
  Transmission Date: 20260117
  Serious: Yes (Hospitalization, Other)
  Sender: APPCO PHARMA LLC
  Company Number: US-Appco Pharma LLC-2187036

PATIENT
  Age: 21 Year
  Sex: Male

DRUGS (4)
  1. SERTRALINE [Suspect]
     Active Substance: SERTRALINE HYDROCHLORIDE
     Indication: Product used for unknown indication
  2. AMLODIPINE [Suspect]
     Active Substance: AMLODIPINE BESYLATE
  3. TAMSULOSIN HYDROCHLORIDE [Suspect]
     Active Substance: TAMSULOSIN HYDROCHLORIDE
  4. LISINOPRIL [Suspect]
     Active Substance: LISINOPRIL

REACTIONS (11)
  - Overdose [Unknown]
  - Pneumonia [Recovered/Resolved]
  - Hyponatraemia [Recovered/Resolved]
  - Ileus [Recovered/Resolved]
  - Acute kidney injury [Recovered/Resolved]
  - Respiratory failure [Unknown]
  - Lactic acidosis [Unknown]
  - Hypotension [Unknown]
  - Serotonin syndrome [Unknown]
  - Suicide attempt [Unknown]
  - Distributive shock [Unknown]
